FAERS Safety Report 7214790-6 (Version None)
Quarter: 2011Q1

REPORT INFORMATION
  Report Type: 
  Country: None (occurrence: None)
  Receive Date: 20110107
  Receipt Date: 20100224
  Transmission Date: 20110831
  Serious: No
  Sender: FDA-Public Use
  Company Number: A0846261A

PATIENT
  Age: 54 Year
  Sex: Female

DRUGS (7)
  1. FELDENE [Concomitant]
  2. METHOTREXATE [Concomitant]
  3. VIVELLE [Concomitant]
  4. LOVAZA [Suspect]
     Dosage: 1G PER DAY
     Route: 048
  5. THYROID [Concomitant]
  6. ENBREL [Concomitant]
  7. PLAQUENIL [Concomitant]

REACTIONS (1)
  - HYPERHIDROSIS [None]
